FAERS Safety Report 10223152 (Version 5)
Quarter: 2014Q3

REPORT INFORMATION
  Report Type: Spontaneous
  Country: US (occurrence: US)
  Receive Date: 20140608
  Receipt Date: 20140901
  Transmission Date: 20150326
  Serious: Yes (Hospitalization)
  Sender: FDA-Public Use
  Company Number: 2014SP003015

PATIENT
  Age: 59 Year
  Sex: Male
  Weight: 46.72 kg

DRUGS (16)
  1. FLUOROURACIL. [Suspect]
     Active Substance: FLUOROURACIL
     Indication: COLORECTAL CANCER METASTATIC
     Dates: start: 20140107, end: 20140415
  2. BEVACIZUMAB [Suspect]
     Active Substance: BEVACIZUMAB
     Indication: PRODUCT USED FOR UNKNOWN INDICATION
     Route: 042
     Dates: start: 20140107, end: 20140415
  3. RANITIDINE [Concomitant]
     Active Substance: RANITIDINE\RANITIDINE HYDROCHLORIDE
     Indication: DYSPHAGIA
     Route: 048
     Dates: start: 20140429
  4. PROCHLORPERAZINE EDISYLATE. [Concomitant]
     Active Substance: PROCHLORPERAZINE EDISYLATE
     Indication: NAUSEA
     Route: 048
     Dates: start: 20140107
  5. FOLINIC ACID [Suspect]
     Active Substance: LEUCOVORIN
     Indication: COLORECTAL CANCER METASTATIC
     Route: 042
     Dates: start: 20140107, end: 20140415
  6. ADVIL (MEFENAMIC ACID) [Concomitant]
     Active Substance: MEFENAMIC ACID
     Indication: PAIN
     Route: 048
     Dates: start: 201312
  7. ONDANSETRON [Concomitant]
     Active Substance: ONDANSETRON
     Indication: NAUSEA
     Route: 048
     Dates: start: 20140513
  8. OMEPRAZOLE. [Concomitant]
     Active Substance: OMEPRAZOLE
     Indication: OESOPHAGITIS
     Route: 048
     Dates: start: 201308
  9. MUGARD /07647601/ [Concomitant]
     Indication: MUCOSAL INFLAMMATION
     Dates: start: 20140119
  10. RANITIDINE [Concomitant]
     Active Substance: RANITIDINE\RANITIDINE HYDROCHLORIDE
     Indication: OESOPHAGITIS
     Route: 048
     Dates: start: 20140429
  11. SERTRALINE [Concomitant]
     Active Substance: SERTRALINE HYDROCHLORIDE
     Indication: DEPRESSION
     Route: 048
     Dates: start: 201308
  12. KYTRIL [Concomitant]
     Active Substance: GRANISETRON HYDROCHLORIDE
     Indication: DEHYDRATION
     Route: 042
     Dates: start: 20140513, end: 20140516
  13. OXALIPLATIN. [Suspect]
     Active Substance: OXALIPLATIN
     Indication: COLORECTAL CANCER METASTATIC
     Route: 042
     Dates: start: 20140107, end: 20140415
  14. FLUOROURACIL. [Suspect]
     Active Substance: FLUOROURACIL
     Indication: COLORECTAL CANCER METASTATIC
     Dates: start: 20140107, end: 20140415
  15. AXITINIB [Suspect]
     Active Substance: AXITINIB
     Indication: COLORECTAL CANCER METASTATIC
     Route: 048
     Dates: start: 20140429, end: 20140520
  16. OMEPRAZOLE. [Concomitant]
     Active Substance: OMEPRAZOLE
     Indication: DYSPHAGIA
     Route: 048
     Dates: start: 201308

REACTIONS (8)
  - Asthenia [Recovered/Resolved]
  - Hypotension [Recovered/Resolved]
  - Loss of consciousness [Recovered/Resolved]
  - Dyspnoea [Recovered/Resolved]
  - Dehydration [Recovered/Resolved]
  - Renal failure acute [Recovered/Resolved]
  - Dizziness [Recovered/Resolved]
  - Fall [Recovered/Resolved]

NARRATIVE: CASE EVENT DATE: 20140521
